FAERS Safety Report 5424200-7 (Version None)
Quarter: 2007Q3

REPORT INFORMATION
  Report Type: 
  Country: None (occurrence: None)
  Receive Date: 20070731
  Receipt Date: 20070529
  Transmission Date: 20080115
  Serious: No
  Sender: FDA-Public Use
  Company Number: US200705007388

PATIENT
  Age: 67 Year
  Sex: Male
  Weight: 79.4 kg

DRUGS (3)
  1. BYETTA [Suspect]
     Indication: TYPE 2 DIABETES MELLITUS
     Dosage: 5 UG, 2/D, SUBCUTANEOUS
     Route: 058
     Dates: start: 20070525, end: 20070525
  2. METFORMIN [Concomitant]
  3. GLIPIZIDE [Concomitant]

REACTIONS (14)
  - ABNORMAL DREAMS [None]
  - ASTHENIA [None]
  - BLOOD GLUCOSE DECREASED [None]
  - CHILLS [None]
  - DIARRHOEA [None]
  - DISORIENTATION [None]
  - DIZZINESS [None]
  - FATIGUE [None]
  - FEELING ABNORMAL [None]
  - HYPERHIDROSIS [None]
  - NAUSEA [None]
  - STOMACH DISCOMFORT [None]
  - VISION BLURRED [None]
  - VOMITING [None]
